FAERS Safety Report 25997653 (Version 1)
Quarter: 2025Q4

REPORT INFORMATION
  Report Type: Report from Study
  Country: EU (occurrence: EU)
  Receive Date: 20251104
  Receipt Date: 20251104
  Transmission Date: 20260117
  Serious: Yes (Hospitalization)
  Sender: ABBVIE
  Company Number: EU-ABBVIE-6528462

PATIENT
  Age: 54 Year
  Sex: Male
  Weight: 96 kg

DRUGS (4)
  1. CARBIDOPA\LEVODOPA [Suspect]
     Active Substance: CARBIDOPA\LEVODOPA
     Indication: Parkinson^s disease
     Dosage: EXTRA DOSE OF 2.5ML, CONTINUOUS DOSE FROM 3.7ML/H TO 3.8ML/H
     Route: 050
     Dates: start: 20151102
  2. CARBIDOPA\LEVODOPA [Suspect]
     Active Substance: CARBIDOPA\LEVODOPA
     Dosage: REDUCE TO 0.3ML, MORNING DOSE: 6.0ML, CONTINUOUS DOSE: 3.7ML/H. EXTRA DOSE: 0.3ML.
     Route: 050
  3. PRAMIPEXOLE [Concomitant]
     Active Substance: PRAMIPEXOLE
     Indication: Product used for unknown indication
     Dosage: 0,7
     Dates: start: 20150202
  4. STALEVO [Concomitant]
     Active Substance: CARBIDOPA\ENTACAPONE\LEVODOPA
     Indication: Product used for unknown indication
     Dosage: 200
     Dates: start: 20150202

REACTIONS (3)
  - Aggression [Unknown]
  - Agitation [Unknown]
  - Hypersexuality [Unknown]
